FAERS Safety Report 16262988 (Version 2)
Quarter: 2019Q3

REPORT INFORMATION
  Report Type: Report from Study
  Country: None (occurrence: US)
  Receive Date: 20190502
  Receipt Date: 20190820
  Transmission Date: 20191004
  Serious: Yes (Other)
  Sender: FDA-Public Use
  Company Number: US-ABBVIE-19K-163-2704407-00

PATIENT
  Sex: Male
  Weight: 55.84 kg

DRUGS (2)
  1. HUMIRA [Suspect]
     Active Substance: ADALIMUMAB
     Indication: PSORIASIS
     Route: 058
     Dates: start: 20180317
  2. HUMIRA [Suspect]
     Active Substance: ADALIMUMAB
     Indication: PSORIASIS
     Route: 058
     Dates: start: 20171218

REACTIONS (6)
  - Blood triglycerides increased [Unknown]
  - Precancerous skin lesion [Unknown]
  - Squamous cell carcinoma [Unknown]
  - Pruritus [Recovering/Resolving]
  - Osteoarthritis [Unknown]
  - Irritable bowel syndrome [Unknown]
